FAERS Safety Report 7480037-9 (Version None)
Quarter: 2011Q2

REPORT INFORMATION
  Report Type: 
  Country: None (occurrence: None)
  Receive Date: 20110516
  Receipt Date: 20110504
  Transmission Date: 20111010
  Serious: No
  Sender: FDA-Public Use
  Company Number: US-BIOGENIDEC-2010BI044527

PATIENT
  Sex: Female
  Weight: 82 kg

DRUGS (5)
  1. WHOOPING COUGH IMMUNIZATION [Concomitant]
     Indication: IMMUNISATION
     Dates: start: 20100901
  2. TETANUS IMMUNE GLOBULIN (HUMAN) [Concomitant]
     Indication: IMMUNISATION
     Dates: start: 20100901
  3. REBIF [Concomitant]
     Indication: MULTIPLE SCLEROSIS
     Route: 058
     Dates: start: 20101019
  4. TYSABRI [Suspect]
     Indication: MULTIPLE SCLEROSIS
     Route: 042
     Dates: start: 20100601, end: 20101001
  5. REBIF [Concomitant]
     Route: 058
     Dates: start: 19990101, end: 20100601

REACTIONS (3)
  - MUSCULOSKELETAL PAIN [None]
  - ARTHROPATHY [None]
  - SHOULDER OPERATION [None]
